FAERS Safety Report 17964420 (Version 1)
Quarter: 2020Q2

REPORT INFORMATION
  Report Type: Spontaneous
  Country: CA (occurrence: CA)
  Receive Date: 20200630
  Receipt Date: 20200630
  Transmission Date: 20200714
  Serious: Yes (Other)
  Sender: FDA-Public Use
  Company Number: CA-PFIZER INC-2020124250

PATIENT
  Age: 71 Year
  Sex: Female

DRUGS (3)
  1. XELJANZ [Suspect]
     Active Substance: TOFACITINIB CITRATE
     Dosage: 5 MG, TWICE A DAY
     Route: 048
     Dates: start: 2020
  2. METHOTREXATE. [Concomitant]
     Active Substance: METHOTREXATE
     Dosage: UNK
  3. XELJANZ [Suspect]
     Active Substance: TOFACITINIB CITRATE
     Indication: RHEUMATOID ARTHRITIS
     Dosage: 5 MG, TWICE A DAY
     Route: 048
     Dates: start: 20200311, end: 20200407

REACTIONS (6)
  - Constipation [Not Recovered/Not Resolved]
  - Psoriasis [Not Recovered/Not Resolved]
  - Intentional product misuse [Unknown]
  - Dizziness [Unknown]
  - Feeling drunk [Unknown]
  - Middle insomnia [Unknown]

NARRATIVE: CASE EVENT DATE: 2020
